FAERS Safety Report 14919314 (Version 27)
Quarter: 2022Q1

REPORT INFORMATION
  Report Type: Spontaneous
  Country: FR (occurrence: FR)
  Receive Date: 20180521
  Receipt Date: 20220216
  Transmission Date: 20220424
  Serious: Yes (Other)
  Sender: FDA-Public Use
  Company Number: None

PATIENT
  Age: 0 Year
  Sex: Male
  Weight: 1.89 kg

DRUGS (63)
  1. ARIPIPRAZOLE [Suspect]
     Active Substance: ARIPIPRAZOLE
     Indication: Bipolar I disorder
     Dosage: 10 MG, QD
     Route: 064
     Dates: start: 20160930, end: 20170224
  2. LEVEMIR [Suspect]
     Active Substance: INSULIN DETEMIR
     Indication: Type 2 diabetes mellitus
     Dosage: 10 IU, QD
     Route: 064
     Dates: start: 20160930, end: 20170224
  3. POTASSIUM CHLORIDE [Suspect]
     Active Substance: POTASSIUM CHLORIDE
     Indication: Hypokalaemia
     Dosage: 3600 MG, QD
     Route: 064
     Dates: start: 20170804
  4. POTASSIUM CHLORIDE [Suspect]
     Active Substance: POTASSIUM CHLORIDE
     Dosage: 1200 MG, QD (2 TO 3 TIMES PER DAY)
     Route: 064
  5. NICOPATCH [Suspect]
     Active Substance: NICOTINE
     Indication: Ex-tobacco user
     Dosage: 7 MG, QD
     Route: 064
     Dates: start: 20170914
  6. NICOPATCH [Suspect]
     Active Substance: NICOTINE
     Dosage: 7 MG, QD
     Route: 064
     Dates: start: 20170224, end: 20170516
  7. HUMALOG [Suspect]
     Active Substance: INSULIN LISPRO
     Indication: Type 2 diabetes mellitus
     Dosage: 21 ?G/M2, QD
     Route: 064
     Dates: start: 20170224, end: 20170224
  8. HUMALOG [Suspect]
     Active Substance: INSULIN LISPRO
     Dosage: 7 ?G/M2, QD
     Route: 064
     Dates: start: 20170224
  9. FUROSEMIDE [Suspect]
     Active Substance: FUROSEMIDE
     Indication: Hypertension
     Dosage: 40 MG, UNK (SCORED TABLET)
     Route: 064
     Dates: start: 20170516
  10. FUROSEMIDE [Suspect]
     Active Substance: FUROSEMIDE
     Dosage: 50 MG, UNK
     Route: 064
     Dates: start: 201705
  11. FUROSEMIDE [Suspect]
     Active Substance: FUROSEMIDE
     Dosage: 40 MG, QD
     Route: 064
  12. GLICLAZIDE [Suspect]
     Active Substance: GLICLAZIDE
     Indication: Type 2 diabetes mellitus
     Dosage: 120 MG, QD
     Route: 064
     Dates: start: 20160930, end: 20170224
  13. TRAMADOL HYDROCHLORIDE [Suspect]
     Active Substance: TRAMADOL HYDROCHLORIDE
     Indication: Diabetic neuropathy
     Dosage: 50 MG, QD
     Route: 064
     Dates: start: 20170306
  14. TRAMADOL HYDROCHLORIDE [Suspect]
     Active Substance: TRAMADOL HYDROCHLORIDE
     Dosage: 50 MG, QD
     Route: 064
     Dates: start: 20160930, end: 20170306
  15. TRAMADOL HYDROCHLORIDE [Suspect]
     Active Substance: TRAMADOL HYDROCHLORIDE
     Dosage: 50 MG, QD
     Route: 064
     Dates: end: 20170306
  16. TRAMADOL HYDROCHLORIDE [Suspect]
     Active Substance: TRAMADOL HYDROCHLORIDE
     Dosage: 100 MG, QD
     Route: 064
     Dates: start: 20160930, end: 20170306
  17. FERROUS SULFATE [Suspect]
     Active Substance: FERROUS SULFATE
     Indication: Normochromic normocytic anaemia
     Dosage: 1 DF, QD
     Route: 064
     Dates: start: 20170914
  18. FERROUS SULFATE [Suspect]
     Active Substance: FERROUS SULFATE
     Dosage: 1 DF, QD
     Route: 064
     Dates: start: 20170313
  19. LABETALOL HYDROCHLORIDE [Suspect]
     Active Substance: LABETALOL HYDROCHLORIDE
     Indication: Hypertension
     Dosage: 80 MG, QD
     Route: 064
     Dates: start: 20170914
  20. LABETALOL HYDROCHLORIDE [Suspect]
     Active Substance: LABETALOL HYDROCHLORIDE
     Dosage: 80 MG, QD
     Route: 064
     Dates: start: 20170516, end: 20170914
  21. POLYETHYLENE GLYCOL 4000 [Suspect]
     Active Substance: POLYETHYLENE GLYCOL 4000
     Indication: Constipation
     Dosage: 1 DF, QD
     Route: 064
     Dates: start: 20170405
  22. POLYETHYLENE GLYCOL 4000 [Suspect]
     Active Substance: POLYETHYLENE GLYCOL 4000
     Dosage: 1 DF, QD
     Route: 064
     Dates: start: 20160930, end: 20170405
  23. POLYETHYLENE GLYCOL 4000 [Suspect]
     Active Substance: POLYETHYLENE GLYCOL 4000
     Dosage: 120 MG, QD
     Route: 064
     Dates: start: 20160930, end: 20170224
  24. FOLIC ACID [Suspect]
     Active Substance: FOLIC ACID
     Indication: Normochromic normocytic anaemia
     Dosage: 5 MG, QD
     Route: 064
     Dates: start: 20170914
  25. FOLIC ACID [Suspect]
     Active Substance: FOLIC ACID
     Dosage: 5 MG, QD
     Route: 064
     Dates: start: 20170313
  26. FOLIC ACID [Suspect]
     Active Substance: FOLIC ACID
     Dosage: 5 MG, QD
     Route: 064
     Dates: start: 20170224, end: 20170313
  27. METHYLDOPA [Suspect]
     Active Substance: METHYLDOPA
     Indication: Hypertension
     Dosage: 1500 MG, QD
     Route: 064
     Dates: start: 20170720
  28. METHYLDOPA [Suspect]
     Active Substance: METHYLDOPA
     Dosage: 500 MG, UNK
     Route: 064
  29. CHLORPROMAZINE [Suspect]
     Active Substance: CHLORPROMAZINE
     Indication: Bipolar I disorder
     Dosage: 25 MG, QD
     Route: 064
     Dates: start: 20170720
  30. RAMIPRIL [Suspect]
     Active Substance: RAMIPRIL
     Indication: Hypertension
     Dosage: 2.5 MG, QD
     Route: 064
     Dates: start: 20160930, end: 20170224
  31. RAMIPRIL [Suspect]
     Active Substance: RAMIPRIL
     Dosage: 370 MG
     Route: 064
  32. GABAPENTIN [Suspect]
     Active Substance: GABAPENTIN
     Indication: Diabetic neuropathy
     Dosage: 80 MG, QD
     Route: 064
     Dates: start: 20170516
  33. GABAPENTIN [Suspect]
     Active Substance: GABAPENTIN
     Dosage: 800 MG, QD
     Route: 064
     Dates: start: 20160930
  34. GABAPENTIN [Suspect]
     Active Substance: GABAPENTIN
     Dosage: 400 MG, QD
     Route: 064
     Dates: start: 20160930
  35. GABAPENTIN [Suspect]
     Active Substance: GABAPENTIN
     Dosage: 80 MG, QD
     Route: 064
     Dates: start: 20160930
  36. LEUCOVORIN [Suspect]
     Active Substance: LEUCOVORIN
     Indication: Normochromic normocytic anaemia
     Dosage: 5 MG, QD
     Route: 064
     Dates: start: 20170313
  37. LEUCOVORIN [Suspect]
     Active Substance: LEUCOVORIN
     Dosage: 5 MG, QD
     Route: 064
     Dates: start: 20170224, end: 20170313
  38. AMOXICILLIN [Suspect]
     Active Substance: AMOXICILLIN
     Indication: Product used for unknown indication
     Dosage: UNK, QD
     Route: 064
     Dates: start: 201708, end: 20180811
  39. AMOXICILLIN [Suspect]
     Active Substance: AMOXICILLIN
     Dosage: 1 G, QD
     Route: 064
     Dates: start: 20170811
  40. AMOXICILLIN [Suspect]
     Active Substance: AMOXICILLIN
     Dosage: 3 G, QD
     Route: 064
     Dates: start: 20170804, end: 20170811
  41. AMOXICILLIN [Suspect]
     Active Substance: AMOXICILLIN
     Dosage: 1 G, QD
     Route: 064
     Dates: start: 20170804, end: 20170811
  42. METFORMIN HYDROCHLORIDE [Suspect]
     Active Substance: METFORMIN HYDROCHLORIDE
     Indication: Type 2 diabetes mellitus
     Dosage: 850 MG, QD
     Route: 064
     Dates: start: 20170224, end: 20170930
  43. METFORMIN HYDROCHLORIDE [Suspect]
     Active Substance: METFORMIN HYDROCHLORIDE
     Dosage: 1700 MG, QD
     Route: 064
     Dates: start: 20160930, end: 20170224
  44. METFORMIN HYDROCHLORIDE [Suspect]
     Active Substance: METFORMIN HYDROCHLORIDE
     Dosage: 1700 MG, QD
     Route: 064
     Dates: start: 20170804
  45. LANTUS [Suspect]
     Active Substance: INSULIN GLARGINE
     Indication: Type 2 diabetes mellitus
     Dosage: 20 IU, QD
     Route: 064
     Dates: start: 20170224, end: 20170914
  46. LANTUS [Suspect]
     Active Substance: INSULIN GLARGINE
     Dosage: 20 MG, QD
     Route: 064
     Dates: start: 20170224
  47. INSULIN PORK\INSULIN PURIFIED PORK [Suspect]
     Active Substance: INSULIN PORK\INSULIN PURIFIED PORK
     Indication: Type 2 diabetes mellitus
     Dosage: UNK
     Route: 064
     Dates: start: 20160930, end: 20170224
  48. AMITRIPTYLINE HYDROCHLORIDE [Suspect]
     Active Substance: AMITRIPTYLINE HYDROCHLORIDE
     Indication: Diabetic neuropathy
     Dosage: 2 DF, QD
     Route: 064
     Dates: start: 20160930
  49. NICARDIPINE HYDROCHLORIDE [Suspect]
     Active Substance: NICARDIPINE HYDROCHLORIDE
     Indication: Hypertension
     Dosage: 50 MG, BID
     Route: 064
     Dates: start: 20170405
  50. NICARDIPINE HYDROCHLORIDE [Suspect]
     Active Substance: NICARDIPINE HYDROCHLORIDE
     Dosage: 1 DF, 12 HOURS
     Route: 064
     Dates: start: 20170313, end: 20180405
  51. INSULIN NOS [Suspect]
     Active Substance: INSULIN NOS
     Indication: Type 2 diabetes mellitus
     Dosage: UNK
     Route: 064
     Dates: start: 20161230, end: 20170224
  52. PROPRANOLOL HYDROCHLORIDE [Suspect]
     Active Substance: PROPRANOLOL HYDROCHLORIDE
     Indication: Hypertension
     Dosage: 80 MG, QD
     Route: 064
     Dates: start: 20170516
  53. LEUCOVORIN CALCIUM [Suspect]
     Active Substance: LEUCOVORIN CALCIUM
     Indication: Normochromic normocytic anaemia
     Dosage: 5 MG, QD
     Route: 064
     Dates: start: 20170224, end: 20170313
  54. LASIX [Suspect]
     Active Substance: FUROSEMIDE
     Indication: Hypertension
     Dosage: 50 MG, QD
     Route: 064
  55. LASIX [Suspect]
     Active Substance: FUROSEMIDE
     Dosage: 40 MG
     Route: 064
  56. NICOTINE [Suspect]
     Active Substance: NICOTINE
     Indication: Ex-tobacco user
     Dosage: 7 MG, QD
     Route: 064
     Dates: start: 20170224, end: 20170914
  57. NICARDIPINE [Suspect]
     Active Substance: NICARDIPINE
     Indication: Hypertension
     Dosage: 50 MG
     Route: 064
     Dates: start: 20170405, end: 20170914
  58. NICARDIPINE [Suspect]
     Active Substance: NICARDIPINE
     Dosage: 50 MG
     Route: 064
  59. FOLIC ACID [Suspect]
     Active Substance: FOLIC ACID
     Indication: Normochromic normocytic anaemia
     Dosage: 5 MG, QD
     Route: 064
     Dates: start: 20170224, end: 20170914
  60. FERROUS SULFATE [Suspect]
     Active Substance: FERROUS SULFATE
     Indication: Normochromic normocytic anaemia
     Dosage: 1 DF, QD
     Route: 064
     Dates: start: 20170313, end: 20170914
  61. AMITRIPTYLINE HYDROCHLORIDE [Suspect]
     Active Substance: AMITRIPTYLINE HYDROCHLORIDE
     Indication: Diabetic neuropathy
     Dosage: 2 DF, QD
     Route: 064
     Dates: start: 20160930, end: 20170914
  62. INSULIN LISPRO [Suspect]
     Active Substance: INSULIN LISPRO
     Indication: Type 2 diabetes mellitus
     Dosage: 21 ?G/M2, QD
     Route: 064
     Dates: start: 20170224, end: 20170914
  63. POTASSIUM CHLORIDE [Suspect]
     Active Substance: POTASSIUM CHLORIDE
     Indication: Hypokalaemia
     Dosage: 3600 MG
     Route: 064

REACTIONS (5)
  - Neutropenia neonatal [Not Recovered/Not Resolved]
  - Premature baby [Recovered/Resolved]
  - Foetal disorder [Unknown]
  - Low birth weight baby [Unknown]
  - Foetal exposure during pregnancy [Unknown]

NARRATIVE: CASE EVENT DATE: 20170914
